FAERS Safety Report 6919166-4 (Version None)
Quarter: 2010Q3

REPORT INFORMATION
  Report Type: 
  Country: None (occurrence: None)
  Receive Date: 20100811
  Receipt Date: 20100805
  Transmission Date: 20110219
  Serious: Yes (Hospitalization)
  Sender: FDA-Public Use
  Company Number: US-ROCHE-718856

PATIENT
  Sex: Female

DRUGS (8)
  1. AVASTIN [Suspect]
     Indication: RENAL CANCER METASTATIC
     Route: 042
     Dates: start: 20100309
  2. TORISEL [Suspect]
     Indication: RENAL CANCER METASTATIC
     Dosage: FORM: CONCENTRATE FOR SOLUTION FOR INFUSION.
     Route: 042
     Dates: start: 20090817, end: 20100301
  3. TORISEL [Suspect]
     Route: 042
     Dates: start: 20100309
  4. VYTORIN [Concomitant]
  5. TRICOR [Concomitant]
  6. GLYCERYL TRINITRATE [Concomitant]
  7. NEXIUM [Concomitant]
  8. ASPIRIN [Concomitant]

REACTIONS (2)
  - CHEST PAIN [None]
  - VENTRICULAR TACHYCARDIA [None]
